FAERS Safety Report 4319856-6 (Version None)
Quarter: 2004Q1

REPORT INFORMATION
  Report Type: 
  Country: None (occurrence: None)
  Receive Date: 20040316
  Receipt Date: 20040305
  Transmission Date: 20041129
  Serious: Yes (Death, Hospitalization)
  Sender: FDA-Public Use
  Company Number: US068616

PATIENT
  Age: 71 Year
  Sex: Male
  Weight: 97.07 kg

DRUGS (5)
  1. ARANESP [Suspect]
     Indication: MYELODYSPLASTIC SYNDROME
     Dosage: 400 MCG, 1 IN  1 WEEKS, SC
     Route: 058
     Dates: start: 20031229, end: 20040103
  2. IBUPROFEN [Concomitant]
  3. PRAVASTATIN SODIUM [Concomitant]
  4. METOPROLOL SUCCINATE [Concomitant]
  5. VICODIN [Concomitant]

REACTIONS (2)
  - CEREBROVASCULAR ACCIDENT [None]
  - MYOCARDIAL INFARCTION [None]
